FAERS Safety Report 8001979-1 (Version None)
Quarter: 2011Q4

REPORT INFORMATION
  Report Type: 
  Country: None (occurrence: None)
  Receive Date: 20111222
  Receipt Date: 20111213
  Transmission Date: 20120403
  Serious: Yes (Hospitalization, Other)
  Sender: FDA-Public Use
  Company Number: FI-ROCHE-1021814

PATIENT
  Sex: Female

DRUGS (2)
  1. MEDROL [Concomitant]
     Indication: RHEUMATOID ARTHRITIS
     Route: 048
  2. MABTHERA [Suspect]
     Indication: RHEUMATOID ARTHRITIS
     Dosage: FREQUENCY CYCLICAL
     Route: 042
     Dates: start: 20100317

REACTIONS (6)
  - EYELID INFECTION [None]
  - SICK SINUS SYNDROME [None]
  - CARDIAC FAILURE [None]
  - PRESYNCOPE [None]
  - INFECTION [None]
  - CHALAZION [None]
